FAERS Safety Report 14305579 (Version 1)
Quarter: 2017Q4

REPORT INFORMATION
  Report Type: Spontaneous
  Country: JP (occurrence: JP)
  Receive Date: 20171219
  Receipt Date: 20171219
  Transmission Date: 20180321
  Serious: Yes (Hospitalization, Other)
  Sender: FDA-Public Use
  Company Number: JP-OTSUKA-JP-2014-15003

PATIENT
  Age: 14 Year
  Sex: Male

DRUGS (6)
  1. ABILIFY [Suspect]
     Active Substance: ARIPIPRAZOLE
     Indication: IMPULSIVE BEHAVIOUR
     Dosage: 1.5 MG, QD
     Route: 048
     Dates: start: 20140620, end: 20140626
  2. ABILIFY [Suspect]
     Active Substance: ARIPIPRAZOLE
     Indication: OFF LABEL USE
  3. LANTUS [Concomitant]
     Active Substance: INSULIN GLARGINE
     Indication: PRODUCT USED FOR UNKNOWN INDICATION
     Dosage: 20 IU, QD
     Route: 058
     Dates: end: 20140619
  4. HUMALOG [Concomitant]
     Active Substance: INSULIN LISPRO
     Indication: PRODUCT USED FOR UNKNOWN INDICATION
     Dosage: 20 IU, TID
     Route: 058
     Dates: end: 20140619
  5. HUMALOG [Concomitant]
     Active Substance: INSULIN LISPRO
     Dosage: 25 IU, TID
     Route: 058
     Dates: start: 20140620
  6. LANTUS [Concomitant]
     Active Substance: INSULIN GLARGINE
     Dosage: 25 IU, QD
     Route: 058
     Dates: start: 20140620

REACTIONS (2)
  - Off label use [Unknown]
  - Diabetic ketoacidosis [Recovering/Resolving]

NARRATIVE: CASE EVENT DATE: 20140620
